FAERS Safety Report 13661917 (Version 1)
Quarter: 2017Q2

REPORT INFORMATION
  Report Type: Other
  Country: US (occurrence: US)
  Receive Date: 20170616
  Receipt Date: 20170616
  Transmission Date: 20170830
  Serious: Yes (Other)
  Sender: FDA-Public Use
  Company Number: US-PRINSTON PHARMACEUTICAL INC.-2017PRN00253

PATIENT
  Age: 87 Year
  Sex: Male
  Weight: 90.7 kg

DRUGS (4)
  1. LISINOPRIL. [Suspect]
     Active Substance: LISINOPRIL
     Indication: HYPERTENSION
     Dosage: 20 MG, 1X/DAY
     Route: 048
     Dates: start: 20170128, end: 20170211
  2. LOVASTATIN. [Concomitant]
     Active Substance: LOVASTATIN
     Dosage: 5 MG, 1X/DAY
  3. FINASTERIDE. [Concomitant]
     Active Substance: FINASTERIDE
     Dosage: 5 MG, 1X/DAY
  4. PROSCAR [Concomitant]
     Active Substance: FINASTERIDE
     Dosage: 75 MG, 1X/DAY

REACTIONS (2)
  - Product substitution issue [Recovered/Resolved]
  - Blood pressure systolic increased [Recovered/Resolved]

NARRATIVE: CASE EVENT DATE: 2017
